FAERS Safety Report 18210443 (Version 2)
Quarter: 2020Q4

REPORT INFORMATION
  Report Type: Spontaneous
  Country: US (occurrence: US)
  Receive Date: 20200829
  Receipt Date: 20201007
  Transmission Date: 20210113
  Serious: No
  Sender: FDA-Public Use
  Company Number: US-ASTRAZENECA-2020SE99642

PATIENT
  Sex: Female

DRUGS (1)
  1. BEVESPI AEROSPHERE [Suspect]
     Active Substance: FORMOTEROL FUMARATE\GLYCOPYRROLATE
     Indication: ASTHMA
     Dosage: 9-4.8 MCG TWO PUFFS TWO TIMES A DAY
     Route: 055
     Dates: start: 2019

REACTIONS (6)
  - Device delivery system issue [Unknown]
  - Cough [Unknown]
  - Device failure [Unknown]
  - Product dose omission issue [Not Recovered/Not Resolved]
  - Intentional device misuse [Unknown]
  - Wrong technique in product usage process [Unknown]
